FAERS Safety Report 12654305 (Version 4)
Quarter: 2016Q3

REPORT INFORMATION
  Report Type: Spontaneous
  Country: US (occurrence: US)
  Receive Date: 20160816
  Receipt Date: 20160921
  Transmission Date: 20161109
  Serious: Yes (Other)
  Sender: FDA-Public Use
  Company Number: US-JNJCP-30000348732

PATIENT
  Sex: Male
  Weight: 70 kg

DRUGS (13)
  1. UNKNOWN BLOOD PRESSURE MEDICATION [Concomitant]
     Active Substance: UNSPECIFIED INGREDIENT
     Indication: HYPERTENSION
  2. NEUTROGENA CLEAR FACE BREAK OUT FREE SUNSCREEN BROAD SPECTRUM SPF30 [Suspect]
     Active Substance: AVOBENZONE\HOMOSALATE\OCTISALATE\OCTOCRYLENE\OXYBENZONE
     Indication: PROPHYLAXIS
     Route: 061
  3. AVEENO ACTIVE NATURALS POSITIVELY RADIANT DAILY MOISTURIZER SUNSCREEN BROAD SPECTRUM SPF15 [Suspect]
     Active Substance: AVOBENZONE\OCTINOXATE\OCTISALATE
     Indication: DRY SKIN PROPHYLAXIS
     Dosage: DIME SIZE AMOUNT ONCE DAILY
     Route: 061
  4. AVEENO CLEAR COMPLEXION FOAMING CLEANSER [Suspect]
     Active Substance: SALICYLIC ACID
     Indication: REMOVAL OF INERT MATTER FROM SKIN OR SUBCUTANEOUS TISSUE
     Route: 061
  5. AVEENO ACTIVE NATURALS POSITIVELY RADIANT DAILY MOISTURIZER SUNSCREEN BROAD SPECTRUM SPF15 [Suspect]
     Active Substance: AVOBENZONE\OCTINOXATE\OCTISALATE
     Indication: DRY SKIN PROPHYLAXIS
     Dosage: DIME SIZE AMOUNT ONCE DAILY
     Route: 061
  6. UNKNOWN CHOLESTEROL MEDS [Concomitant]
     Indication: BLOOD CHOLESTEROL INCREASED
  7. AVEENO STRESS RELIEF BODY WASH [Suspect]
     Active Substance: OATMEAL
     Indication: REMOVAL OF INERT MATTER FROM SKIN OR SUBCUTANEOUS TISSUE
     Route: 061
  8. AVEENO STRESS RELIEF BODY WASH [Suspect]
     Active Substance: OATMEAL
     Indication: REMOVAL OF INERT MATTER FROM SKIN OR SUBCUTANEOUS TISSUE
     Route: 061
  9. NATURAL SUPPLEMENTS [Concomitant]
     Indication: ROUTINE HEALTH MAINTENANCE
  10. AVEENO CLEAR COMPLEXION FOAMING CLEANSER [Suspect]
     Active Substance: SALICYLIC ACID
     Indication: REMOVAL OF INERT MATTER FROM SKIN OR SUBCUTANEOUS TISSUE
     Route: 061
  11. NEUTROGENA CLEAR FACE BREAK OUT FREE SUNSCREEN BROAD SPECTRUM SPF30 [Suspect]
     Active Substance: AVOBENZONE\HOMOSALATE\OCTISALATE\OCTOCRYLENE\OXYBENZONE
     Indication: PROPHYLAXIS
     Route: 061
  12. NEUTROGENA MEN SENSITIVE SKIN SHAVE CREAM [Suspect]
     Active Substance: COSMETICS
     Dosage: DIME SIZE AMOUNT ONCE EVERY OTHER DAY
     Route: 061
  13. NEUTROGENA MEN SENSITIVE SKIN SHAVE CREAM [Suspect]
     Active Substance: COSMETICS
     Dosage: DIME SIZE AMOUNT ONCE EVERY OTHER DAY
     Route: 061

REACTIONS (5)
  - Product expiration date issue [Unknown]
  - Basal cell carcinoma [Recovering/Resolving]
  - Rash pruritic [Recovering/Resolving]
  - Dermatitis contact [Recovering/Resolving]
  - Product lot number issue [Unknown]
